FAERS Safety Report 6863669-8 (Version None)
Quarter: 2010Q3

REPORT INFORMATION
  Report Type: 
  Country: None (occurrence: None)
  Receive Date: 20100721
  Receipt Date: 20080306
  Transmission Date: 20110219
  Serious: Yes (Other)
  Sender: FDA-Public Use
  Company Number: US-PFIZER INC-2008022580

PATIENT
  Sex: Male
  Weight: 65.909 kg

DRUGS (7)
  1. CHANTIX [Suspect]
     Indication: SMOKING CESSATION THERAPY
     Dates: start: 20080211, end: 20080217
  2. DEXTROAMPHETAMINE SULFATE [Concomitant]
  3. VALIUM [Concomitant]
  4. MUCINEX [Concomitant]
  5. ALBUTEROL [Concomitant]
  6. PRILOSEC [Concomitant]
  7. ANALGESICS [Concomitant]

REACTIONS (8)
  - CARDIAC FLUTTER [None]
  - DEPRESSION [None]
  - HEADACHE [None]
  - ILL-DEFINED DISORDER [None]
  - PALPITATIONS [None]
  - SUICIDAL IDEATION [None]
  - TOBACCO USER [None]
  - WEIGHT INCREASED [None]
